FAERS Safety Report 5498056-0 (Version None)
Quarter: 2007Q4

REPORT INFORMATION
  Report Type: 
  Country: None (occurrence: None)
  Receive Date: 20071025
  Receipt Date: 20071015
  Transmission Date: 20080405
  Serious: Yes (Other)
  Sender: FDA-Public Use
  Company Number: US-JNJFOC-20070800496

PATIENT
  Sex: Female
  Weight: 72.58 kg

DRUGS (8)
  1. REMICADE [Suspect]
     Indication: RHEUMATOID ARTHRITIS
     Dosage: 3 INFUSIONS ON UNSPECIFIED DATES.
     Route: 042
  2. PREDNISONE [Concomitant]
  3. LEVOTHYROXINE SODIUM [Concomitant]
  4. TRIAZOLAM [Concomitant]
     Dosage: AT NIGHT
  5. POTASSIUM CHLORIDE [Concomitant]
     Dosage: 1-2 DAILY
  6. PREMPRO [Concomitant]
  7. DARVOCET [Concomitant]
  8. LIPITOR [Concomitant]

REACTIONS (1)
  - NEOPLASM MALIGNANT [None]
